FAERS Safety Report 12198891 (Version 1)
Quarter: 2016Q1

REPORT INFORMATION
  Report Type: Spontaneous
  Country: IT (occurrence: IT)
  Receive Date: 20160322
  Receipt Date: 20160322
  Transmission Date: 20160526
  Serious: Yes (Other)
  Sender: FDA-Public Use
  Company Number: IT-ACCORD-038978

PATIENT
  Sex: Female
  Weight: 58 kg

DRUGS (2)
  1. ETOPOSIDE. [Suspect]
     Active Substance: ETOPOSIDE
     Indication: PANCREATIC NEOPLASM
     Route: 042
     Dates: start: 20160118, end: 20160118
  2. CISPLATIN. [Concomitant]
     Active Substance: CISPLATIN
     Indication: PANCREATIC NEOPLASM
     Route: 042
     Dates: start: 20160118, end: 20160118

REACTIONS (4)
  - Dyspnoea [Recovered/Resolved]
  - Rash [Recovered/Resolved]
  - Hot flush [Recovered/Resolved]
  - Off label use [Unknown]

NARRATIVE: CASE EVENT DATE: 20160118
